FAERS Safety Report 10281793 (Version 1)
Quarter: 2014Q3

REPORT INFORMATION
  Report Type: Spontaneous
  Country: US (occurrence: US)
  Receive Date: 20140707
  Receipt Date: 20140707
  Transmission Date: 20150326
  Serious: Yes (Hospitalization, Other)
  Sender: FDA-Public Use
  Company Number: US-GLAXOSMITHKLINE-A1079023A

PATIENT
  Age: 75 Year
  Sex: Male

DRUGS (6)
  1. BENLYSTA [Suspect]
     Active Substance: BELIMUMAB
     Indication: SYSTEMIC LUPUS ERYTHEMATOSUS
     Dosage: 800MG UNKNOWN
     Route: 042
     Dates: start: 20120816, end: 20140416
  2. FELODIPINE. [Concomitant]
     Active Substance: FELODIPINE
  3. IMURAN [Concomitant]
     Active Substance: AZATHIOPRINE
  4. DEXILANT [Concomitant]
     Active Substance: DEXLANSOPRAZOLE
  5. TRENTAL [Concomitant]
     Active Substance: PENTOXIFYLLINE
  6. ASPIRIN. [Concomitant]
     Active Substance: ASPIRIN

REACTIONS (4)
  - Surgery [Unknown]
  - Vomiting [Unknown]
  - Abdominal discomfort [Unknown]
  - Lymphoma [Unknown]
